FAERS Safety Report 21233377 (Version 1)
Quarter: 2022Q3

REPORT INFORMATION
  Report Type: Spontaneous
  Country: US (occurrence: US)
  Receive Date: 20220819
  Receipt Date: 20220819
  Transmission Date: 20221026
  Serious: No
  Sender: FDA-Public Use
  Company Number: US-PFIZER INC-PV202200045372

PATIENT
  Age: 4 Year
  Sex: Female

DRUGS (4)
  1. MINOXIDIL [Suspect]
     Active Substance: MINOXIDIL
     Indication: Alopecia universalis
     Dosage: UNK
     Route: 048
  2. TOFACITINIB [Suspect]
     Active Substance: TOFACITINIB
     Indication: Alopecia universalis
     Dosage: 2.5 MG, 1X/DAY
  3. TOFACITINIB [Suspect]
     Active Substance: TOFACITINIB
     Dosage: 5 MG, 1X/DAY
  4. PREDNISONE [Suspect]
     Active Substance: PREDNISONE
     Dosage: UNK

REACTIONS (2)
  - Drug ineffective for unapproved indication [Unknown]
  - Off label use [Unknown]
